FAERS Safety Report 4885239-3 (Version None)
Quarter: 2005Q4

REPORT INFORMATION
  Report Type: 
  Country: None (occurrence: None)
  Receive Date: 20051214
  Receipt Date: 20050308
  Transmission Date: 20060501
  Serious: Yes (Death)
  Sender: FDA-Public Use
  Company Number: RS005040-USA

PATIENT
  Age: 60 Year
  Sex: Female

DRUGS (1)
  1. ACIPHEX [Suspect]
     Dosage: 40 MG, 2 IN 1 D, ORAL
     Route: 048

REACTIONS (1)
  - DEATH [None]
